FAERS Safety Report 7594943-8 (Version None)
Quarter: 2011Q3

REPORT INFORMATION
  Report Type: 
  Country: None (occurrence: None)
  Receive Date: 20110707
  Receipt Date: 20110617
  Transmission Date: 20111222
  Serious: No
  Sender: FDA-Public Use
  Company Number: US-B.I. PHARMACEUTICALS,INC./RIDGEFIELD-2011-BP-15804BP

PATIENT
  Sex: Male

DRUGS (13)
  1. FINASTERIDE [Concomitant]
     Indication: BENIGN PROSTATIC HYPERPLASIA
     Route: 048
  2. LANTUS [Concomitant]
     Indication: TYPE 1 DIABETES MELLITUS
     Dosage: 44 U
     Route: 058
  3. ULORIC [Concomitant]
     Indication: GOUT
     Dosage: 80 MG
     Route: 048
  4. JANUVIA [Concomitant]
     Indication: TYPE 1 DIABETES MELLITUS
     Dosage: 50 MG
     Route: 048
  5. VALTURNA [Concomitant]
     Indication: HYPERTENSION
     Dosage: 150 MG
     Route: 048
  6. BYSTOLIC [Concomitant]
     Indication: HYPERTENSION
     Dosage: 5 MG
     Route: 048
  7. LASIX [Concomitant]
     Indication: CARDIAC FAILURE CONGESTIVE
     Dosage: 40 MG
     Route: 048
  8. EXCEDRINE MIGRAINE [Concomitant]
     Indication: PAIN
     Route: 048
     Dates: start: 20110616, end: 20110616
  9. PRADAXA [Suspect]
     Indication: ATRIAL FIBRILLATION
     Dosage: 300 MG
     Route: 048
     Dates: start: 20110610
  10. REGLAN [Concomitant]
     Indication: GASTROOESOPHAGEAL REFLUX DISEASE
     Dosage: 20 MG
     Route: 048
  11. LIPITOR [Concomitant]
     Indication: BLOOD CHOLESTEROL INCREASED
     Dosage: 10 MG
     Route: 048
  12. REVATIO [Concomitant]
     Indication: ERECTILE DYSFUNCTION
     Dosage: 20 MG
     Route: 048
  13. ACTOS [Concomitant]
     Indication: TYPE 1 DIABETES MELLITUS
     Dosage: 15 MG
     Route: 048

REACTIONS (1)
  - ANXIETY [None]
